FAERS Safety Report 6903645-X (Version None)
Quarter: 2010Q3

REPORT INFORMATION
  Report Type: 
  Country: None (occurrence: None)
  Receive Date: 20100803
  Receipt Date: 20081101
  Transmission Date: 20110219
  Serious: No
  Sender: FDA-Public Use
  Company Number: US-PFIZER INC-2008083588

PATIENT
  Sex: Female
  Weight: 77.11 kg

DRUGS (10)
  1. LYRICA [Suspect]
     Indication: PAIN IN EXTREMITY
     Route: 048
     Dates: start: 20080930
  2. LYRICA [Interacting]
     Indication: DIABETIC NEUROPATHY
  3. COUMADIN [Interacting]
     Route: 048
  4. ALL OTHER THERAPEUTIC PRODUCTS [Interacting]
     Indication: HEART RATE ABNORMAL
  5. PRAVASTATIN [Concomitant]
  6. LISINOPRIL [Concomitant]
  7. FUROSEMIDE [Concomitant]
  8. ANASTROZOLE [Concomitant]
  9. METFORMIN HCL [Concomitant]
  10. FLECAINIDE ACETATE [Concomitant]

REACTIONS (3)
  - DIZZINESS [None]
  - DRUG INTERACTION [None]
  - FEELING ABNORMAL [None]
